FAERS Safety Report 20120093 (Version 3)
Quarter: 2023Q2

REPORT INFORMATION
  Report Type: Spontaneous
  Country: US (occurrence: US)
  Receive Date: 20211126
  Receipt Date: 20230421
  Transmission Date: 20230722
  Serious: Yes (Other)
  Sender: FDA-Public Use
  Company Number: US-GILEAD-2021-0557450

PATIENT
  Age: 45 Year
  Sex: Male
  Weight: 79.365 kg

DRUGS (28)
  1. VIREAD [Suspect]
     Active Substance: TENOFOVIR DISOPROXIL FUMARATE
     Indication: HIV infection
     Dosage: UNK
     Route: 048
     Dates: start: 200310, end: 200401
  2. ATRIPLA [Suspect]
     Active Substance: EFAVIRENZ\EMTRICITABINE\TENOFOVIR DISOPROXIL FUMARATE
     Indication: HIV infection
     Dosage: UNK
     Route: 048
     Dates: start: 2003
  3. ATRIPLA [Suspect]
     Active Substance: EFAVIRENZ\EMTRICITABINE\TENOFOVIR DISOPROXIL FUMARATE
     Dosage: UNK
     Route: 048
     Dates: start: 200710, end: 200710
  4. TRUVADA [Suspect]
     Active Substance: EMTRICITABINE\TENOFOVIR DISOPROXIL FUMARATE
     Indication: HIV infection
     Dosage: UNK
     Route: 048
     Dates: start: 2003
  5. TRUVADA [Suspect]
     Active Substance: EMTRICITABINE\TENOFOVIR DISOPROXIL FUMARATE
     Dosage: UNK
     Route: 048
     Dates: start: 200501, end: 201605
  6. BIKTARVY [Concomitant]
     Active Substance: BICTEGRAVIR SODIUM\EMTRICITABINE\TENOFOVIR ALAFENAMIDE FUMARATE
  7. GENVOYA [Concomitant]
     Active Substance: COBICISTAT\ELVITEGRAVIR\EMTRICITABINE\TENOFOVIR ALAFENAMIDE FUMARATE
  8. ROSUVASTATIN [Concomitant]
     Active Substance: ROSUVASTATIN
  9. LISINOPRIL [Concomitant]
     Active Substance: LISINOPRIL
  10. OMEPRAZOLE [Concomitant]
     Active Substance: OMEPRAZOLE
  11. TAMSULOSIN [Concomitant]
     Active Substance: TAMSULOSIN
  12. NORVIR [Concomitant]
     Active Substance: RITONAVIR
  13. SUSTIVA [Concomitant]
     Active Substance: EFAVIRENZ
  14. VIRAMUNE [Concomitant]
     Active Substance: NEVIRAPINE
  15. PROLIA [Concomitant]
     Active Substance: DENOSUMAB
  16. CRESTOR [Concomitant]
     Active Substance: ROSUVASTATIN CALCIUM
  17. FENOFIBRATE [Concomitant]
     Active Substance: FENOFIBRATE
  18. PRAVASTATIN [Concomitant]
     Active Substance: PRAVASTATIN
  19. OMEGA-3-ACID ETHYL ESTERS [Concomitant]
     Active Substance: OMEGA-3-ACID ETHYL ESTERS
  20. PRAVACHOL [Concomitant]
     Active Substance: PRAVASTATIN SODIUM
  21. VASCEPA [Concomitant]
     Active Substance: ICOSAPENT ETHYL
  22. ISENTRESS [Concomitant]
     Active Substance: RALTEGRAVIR POTASSIUM
  23. REYATAZ [Concomitant]
     Active Substance: ATAZANAVIR SULFATE
  24. ZIAGEN [Concomitant]
     Active Substance: ABACAVIR SULFATE
  25. ESCITALOPRAM [Concomitant]
     Active Substance: ESCITALOPRAM OXALATE
  26. HUMALOG HD KWIKPEN [Concomitant]
  27. INVOKANA [Concomitant]
     Active Substance: CANAGLIFLOZIN
  28. JANUVIA [Concomitant]
     Active Substance: SITAGLIPTIN PHOSPHATE

REACTIONS (14)
  - Osteoporosis [Not Recovered/Not Resolved]
  - Osteopenia [Recovered/Resolved]
  - Bone density decreased [Unknown]
  - Pain [Not Recovered/Not Resolved]
  - Emotional distress [Not Recovered/Not Resolved]
  - Anxiety [Not Recovered/Not Resolved]
  - Anhedonia [Not Recovered/Not Resolved]
  - Micturition disorder [Unknown]
  - Rash [Unknown]
  - Mobility decreased [Not Recovered/Not Resolved]
  - Gait disturbance [Not Recovered/Not Resolved]
  - Loss of personal independence in daily activities [Not Recovered/Not Resolved]
  - Proteinuria [Recovered/Resolved]
  - Hyperlipidaemia [Not Recovered/Not Resolved]

NARRATIVE: CASE EVENT DATE: 20060801
